FAERS Safety Report 6753767-1 (Version None)
Quarter: 2010Q2

REPORT INFORMATION
  Report Type: 
  Country: None (occurrence: None)
  Receive Date: 20100603
  Receipt Date: 20100514
  Transmission Date: 20101027
  Serious: Yes (Other)
  Sender: FDA-Public Use
  Company Number: US-ROCHE-706741

PATIENT
  Sex: Female

DRUGS (4)
  1. HERCEPTIN [Suspect]
     Indication: BREAST CANCER
     Route: 065
  2. HERCEPTIN [Suspect]
     Route: 065
  3. TAMOXIFEN CITRATE [Concomitant]
  4. VITAMIN D [Concomitant]
     Dosage: DRUG REPORTED AS VITAMIN D

REACTIONS (2)
  - ANAL FISSURE [None]
  - IMPAIRED HEALING [None]
